FAERS Safety Report 12208571 (Version 1)
Quarter: 2016Q1

REPORT INFORMATION
  Report Type: Spontaneous
  Country: GB (occurrence: GB)
  Receive Date: 20160324
  Receipt Date: 20160324
  Transmission Date: 20160526
  Serious: Yes (Other)
  Sender: FDA-Public Use
  Company Number: PHFR2016GB002553

PATIENT
  Age: 51 Year
  Sex: Male

DRUGS (4)
  1. QUETIAPINE [Concomitant]
     Active Substance: QUETIAPINE
     Indication: PRODUCT USED FOR UNKNOWN INDICATION
     Route: 065
  2. OLANZAPINE. [Concomitant]
     Active Substance: OLANZAPINE
     Indication: PRODUCT USED FOR UNKNOWN INDICATION
     Route: 065
  3. MIRTAZAPINE. [Concomitant]
     Active Substance: MIRTAZAPINE
     Indication: PRODUCT USED FOR UNKNOWN INDICATION
     Route: 065
  4. CLOMIPRAMINE [Suspect]
     Active Substance: CLOMIPRAMINE
     Indication: OBSESSIVE-COMPULSIVE DISORDER
     Dosage: 200 MG, UNK
     Route: 048
     Dates: start: 20160112, end: 20160202

REACTIONS (4)
  - Urinary retention [Recovering/Resolving]
  - Dry mouth [Unknown]
  - Hyponatraemia [Recovering/Resolving]
  - Polydipsia [Unknown]

NARRATIVE: CASE EVENT DATE: 20160202
